FAERS Safety Report 16490382 (Version 1)
Quarter: 2019Q3

REPORT INFORMATION
  Report Type: Spontaneous
  Country: US (occurrence: US)
  Receive Date: 20190627
  Receipt Date: 20190627
  Transmission Date: 20191004
  Serious: Yes (Hospitalization)
  Sender: FDA-Public Use
  Company Number: None

PATIENT
  Age: 56 Year
  Sex: Female

DRUGS (7)
  1. CAPECITABINE. [Suspect]
     Active Substance: CAPECITABINE
     Indication: RECTAL CANCER
     Route: 048
     Dates: start: 20180104
  2. TOPIRAMATE TAB 10 MG [Concomitant]
  3. TOPIRAMATE TAB 25 MG [Concomitant]
  4. MOVIPREP SOL [Concomitant]
  5. PROCHLORPER TAB 5 MG [Concomitant]
  6. ONDANSETRON TAB 8 MG ODT [Concomitant]
  7. MONTELUKAST TAB 10 MG [Concomitant]

REACTIONS (2)
  - Surgery [None]
  - Therapy cessation [None]
